FAERS Safety Report 15376455 (Version 1)
Quarter: 2018Q3

REPORT INFORMATION
  Report Type: Spontaneous
  Country: IT (occurrence: IT)
  Receive Date: 20180912
  Receipt Date: 20180912
  Transmission Date: 20181010
  Serious: Yes (Other)
  Sender: FDA-Public Use
  Company Number: IT-BAUSCH-BL-2018-024153

PATIENT
  Age: 15 Year
  Sex: Female

DRUGS (2)
  1. POLYVINYLPYRROLIDONE [Suspect]
     Active Substance: POVIDONE
     Indication: CONJUNCTIVITIS
     Dosage: ONE DROP IN BOTH EYES
     Route: 047
  2. LOTEPREDNOL [Suspect]
     Active Substance: LOTEPREDNOL
     Indication: CONJUNCTIVITIS
     Dosage: ONE DROP IN BOTH EYES
     Route: 047

REACTIONS (1)
  - Anaphylactic reaction [Recovered/Resolved]
